FAERS Safety Report 5431595-7 (Version None)
Quarter: 2007Q3

REPORT INFORMATION
  Report Type: 
  Country: None (occurrence: None)
  Receive Date: 20070731
  Receipt Date: 20070511
  Transmission Date: 20080115
  Serious: No
  Sender: FDA-Public Use
  Company Number: US200705003025

PATIENT
  Age: 75 Year
  Sex: Male
  Weight: 108.8 kg

DRUGS (4)
  1. BYETTA [Suspect]
     Indication: TYPE 2 DIABETES MELLITUS
     Dosage: 5 UG, 2/D, SUBCUTANEOUS   10 UG, 2/D, SUBCUTANEOUS
     Route: 058
     Dates: start: 20070119, end: 20070427
  2. BYETTA [Suspect]
     Indication: TYPE 2 DIABETES MELLITUS
     Dosage: 5 UG, 2/D, SUBCUTANEOUS   10 UG, 2/D, SUBCUTANEOUS
     Route: 058
     Dates: start: 20070428
  3. GLUCOTROL [Concomitant]
  4. EXENATIDE [Concomitant]

REACTIONS (11)
  - ANOREXIA [None]
  - ASTHENIA [None]
  - BLOOD GLUCOSE DECREASED [None]
  - BLOOD GLUCOSE INCREASED [None]
  - DRY MOUTH [None]
  - FEELING ABNORMAL [None]
  - NAUSEA [None]
  - SINUSITIS [None]
  - SOMNOLENCE [None]
  - SQUAMOUS CELL CARCINOMA OF SKIN [None]
  - WEIGHT DECREASED [None]
